FAERS Safety Report 25047834 (Version 5)
Quarter: 2025Q3

REPORT INFORMATION
  Report Type: Spontaneous
  Country: US (occurrence: US)
  Receive Date: 20250306
  Receipt Date: 20250708
  Transmission Date: 20251021
  Serious: Yes (Other)
  Sender: MERCK SHARP & DOHME LLC
  Company Number: US-009507513-2254620

PATIENT
  Age: 66 Year
  Sex: Female
  Weight: 89.8 kg

DRUGS (69)
  1. WINREVAIR [Suspect]
     Active Substance: SOTATERCEPT-CSRK
     Indication: Product used for unknown indication
     Dates: end: 202503
  2. WINREVAIR [Suspect]
     Active Substance: SOTATERCEPT-CSRK
  3. WINREVAIR [Suspect]
     Active Substance: SOTATERCEPT-CSRK
  4. WINREVAIR [Suspect]
     Active Substance: SOTATERCEPT-CSRK
  5. TYVASO [Suspect]
     Active Substance: TREPROSTINIL
     Indication: Pulmonary arterial hypertension
     Dosage: STRENGTH: 0.6 MG/ML
     Dates: end: 2025
  6. TYVASO [Suspect]
     Active Substance: TREPROSTINIL
     Indication: Pulmonary arterial hypertension
     Dates: start: 2025, end: 2025
  7. TYVASO [Suspect]
     Active Substance: TREPROSTINIL
     Indication: Pulmonary arterial hypertension
     Dosage: STRENGTH: 0.6 MG/ML
     Dates: start: 2025
  8. TYVASO [Suspect]
     Active Substance: TREPROSTINIL
     Indication: Pulmonary arterial hypertension
     Dates: start: 20200522
  9. DILTIAZEM HYDROCHLORIDE [Concomitant]
     Active Substance: DILTIAZEM HYDROCHLORIDE
  10. LUBIPROSTONE [Concomitant]
     Active Substance: LUBIPROSTONE
  11. METHOCARBAMOL [Concomitant]
     Active Substance: METHOCARBAMOL
  12. MACROBID [Concomitant]
     Active Substance: NITROFURANTOIN\NITROFURANTOIN MONOHYDRATE
  13. AZATHIOPRINE [Concomitant]
     Active Substance: AZATHIOPRINE
  14. BACTRIM DS [Concomitant]
     Active Substance: SULFAMETHOXAZOLE\TRIMETHOPRIM
  15. MIRALAX [Concomitant]
     Active Substance: POLYETHYLENE GLYCOL 3350
  16. TACROLIMUS [Concomitant]
     Active Substance: TACROLIMUS
  17. DULOXETINE HYDROCHLORIDE [Concomitant]
     Active Substance: DULOXETINE HYDROCHLORIDE
  18. ALBUTEROL SULFATE [Concomitant]
     Active Substance: ALBUTEROL SULFATE
  19. MOMETASONE FUROATE [Concomitant]
     Active Substance: MOMETASONE FUROATE
  20. PIOGLITAZONE [Concomitant]
     Active Substance: PIOGLITAZONE
  21. BUDESONIDE\FORMOTEROL [Concomitant]
     Active Substance: BUDESONIDE\FORMOTEROL
  22. NITROGLYCERIN [Concomitant]
     Active Substance: NITROGLYCERIN
  23. PREGABALIN [Concomitant]
     Active Substance: PREGABALIN
  24. FLUTICASONE PROPIONATE [Concomitant]
     Active Substance: FLUTICASONE PROPIONATE
  25. MUPIROCIN [Concomitant]
     Active Substance: MUPIROCIN
  26. ALPRAZOLAM [Concomitant]
     Active Substance: ALPRAZOLAM
  27. ATORVASTATIN CALCIUM [Concomitant]
     Active Substance: ATORVASTATIN CALCIUM
  28. REFRESH PLUS [Concomitant]
     Active Substance: CARBOXYMETHYLCELLULOSE SODIUM
  29. MONTELUKAST SODIUM [Concomitant]
     Active Substance: MONTELUKAST SODIUM
  30. VITAMIN B12 [Concomitant]
     Active Substance: CYANOCOBALAMIN
  31. ASPIRIN [Concomitant]
     Active Substance: ASPIRIN
  32. LIDOCAINE [Concomitant]
     Active Substance: LIDOCAINE
  33. VOLTAREN [Concomitant]
     Active Substance: DICLOFENAC SODIUM
  34. DEXAMETHASONE\NEOMYCIN\POLYMYXIN B [Concomitant]
     Active Substance: DEXAMETHASONE\NEOMYCIN\POLYMYXIN B
  35. GABAPENTIN [Concomitant]
     Active Substance: GABAPENTIN
  36. CLIMARA [Concomitant]
     Active Substance: ESTRADIOL
  37. RESTASIS [Concomitant]
     Active Substance: CYCLOSPORINE
  38. SODIUM CHLORIDE [Concomitant]
     Active Substance: SODIUM CHLORIDE
  39. BENZONATATE [Concomitant]
     Active Substance: BENZONATATE
  40. NOVOLOG [Concomitant]
     Active Substance: INSULIN ASPART
  41. ONDANSETRON HYDROCHLORIDE [Concomitant]
     Active Substance: ONDANSETRON HYDROCHLORIDE
  42. TRIAMCINOLONE ACETONIDE [Concomitant]
     Active Substance: TRIAMCINOLONE ACETONIDE
  43. IRON [Concomitant]
     Active Substance: IRON
  44. METFORMIN HYDROCHLORIDE [Concomitant]
     Active Substance: METFORMIN HYDROCHLORIDE
  45. XYZAL [Concomitant]
     Active Substance: LEVOCETIRIZINE DIHYDROCHLORIDE
  46. BISACODYL [Concomitant]
     Active Substance: BISACODYL
  47. AMMONIUM LACTATE [Concomitant]
     Active Substance: AMMONIUM LACTATE
  48. LASIX [Concomitant]
     Active Substance: FUROSEMIDE
  49. REGLAN [Concomitant]
     Active Substance: METOCLOPRAMIDE HYDROCHLORIDE
  50. METOPROLOL TARTRATE [Concomitant]
     Active Substance: METOPROLOL TARTRATE
  51. ERYTHROMYCIN [Concomitant]
     Active Substance: ERYTHROMYCIN
  52. ADVAIR HFA [Concomitant]
     Active Substance: FLUTICASONE PROPIONATE\SALMETEROL XINAFOATE
  53. EZETIMIBE [Concomitant]
     Active Substance: EZETIMIBE
  54. MOTEGRITY [Concomitant]
     Active Substance: PRUCALOPRIDE SUCCINATE
  55. PIOGLITAZONE AND METFORMIN [Concomitant]
     Active Substance: METFORMIN HYDROCHLORIDE\PIOGLITAZONE HYDROCHLORIDE
  56. LORAZEPAM [Concomitant]
     Active Substance: LORAZEPAM
  57. LANTUS [Concomitant]
     Active Substance: INSULIN GLARGINE
  58. TYLENOL [Concomitant]
     Active Substance: ACETAMINOPHEN
  59. DIAZEPAM [Concomitant]
     Active Substance: DIAZEPAM
  60. TOPIRAMATE [Concomitant]
     Active Substance: TOPIRAMATE
  61. PANTOPRAZOLE SODIUM [Concomitant]
     Active Substance: PANTOPRAZOLE SODIUM
  62. METAMUCIL [Concomitant]
     Active Substance: PLANTAGO SEED
  63. CYANOCOBALAMIN [Concomitant]
     Active Substance: CYANOCOBALAMIN
  64. TELMISARTAN [Concomitant]
     Active Substance: TELMISARTAN
  65. LINZESS [Concomitant]
     Active Substance: LINACLOTIDE
  66. DOXYCYCLINE HYCLATE [Concomitant]
     Active Substance: DOXYCYCLINE HYCLATE
  67. CICLOPIROX [Concomitant]
     Active Substance: CICLOPIROX
  68. SOLIFENACIN SUCCINATE [Concomitant]
     Active Substance: SOLIFENACIN SUCCINATE
  69. MOXIFLOXACIN [Concomitant]
     Active Substance: MOXIFLOXACIN

REACTIONS (6)
  - Loss of consciousness [Recovered/Resolved]
  - Dizziness [Unknown]
  - Epistaxis [Unknown]
  - Headache [Unknown]
  - Injection site bruising [Not Recovered/Not Resolved]
  - Mouth haemorrhage [Unknown]

NARRATIVE: CASE EVENT DATE: 20250331
